FAERS Safety Report 5350979-9 (Version None)
Quarter: 2007Q2

REPORT INFORMATION
  Report Type: 
  Country: None (occurrence: None)
  Receive Date: 20070606
  Receipt Date: 20070524
  Transmission Date: 20071010
  Serious: Yes (Hospitalization)
  Sender: FDA-Public Use
  Company Number: CERZ-11327

PATIENT
  Age: 62 Year
  Sex: Male
  Weight: 90.2658 kg

DRUGS (1)
  1. CEREZYME [Suspect]
     Indication: GAUCHER'S DISEASE
     Dosage: 1200 UNITS Q4WKS IV
     Route: 042
     Dates: start: 19971216

REACTIONS (7)
  - CARDIAC AMYLOIDOSIS [None]
  - CARDIOMEGALY [None]
  - CARDIOMYOPATHY [None]
  - HYPERTENSION [None]
  - MULTIPLE MYELOMA [None]
  - PERICARDIAL EFFUSION [None]
  - THROMBOSIS [None]
